FAERS Safety Report 5053875-X (Version None)
Quarter: 2006Q3

REPORT INFORMATION
  Report Type: 
  Country: None (occurrence: None)
  Receive Date: 20060718
  Receipt Date: 20060301
  Transmission Date: 20061208
  Serious: Yes (Other)
  Sender: FDA-Public Use
  Company Number: US-ROCHE-438831

PATIENT
  Age: 24 Year
  Sex: Female
  Weight: 63.5 kg

DRUGS (5)
  1. ACCUTANE [Suspect]
     Indication: ACNE
     Route: 048
     Dates: start: 19830615, end: 19830615
  2. ACCUTANE [Suspect]
     Route: 048
     Dates: start: 19840813
  3. ACCUTANE [Suspect]
     Dosage: ACCUTANE DECREASED TO 1 DAILY OR ONE ONCE DAILY OR ONE TWICE WEEKLY.
     Route: 048
     Dates: start: 19850114, end: 19850314
  4. ACCUTANE [Suspect]
     Route: 048
     Dates: start: 19870115, end: 19870615
  5. 1 CONCOMITANT DRUG [Concomitant]
     Indication: HEADACHE
     Dosage: DRUG REPORTED AS ASPIRIN/TYLENOL.

REACTIONS (124)
  - ABDOMINAL DISTENSION [None]
  - ABDOMINAL PAIN [None]
  - ABDOMINAL PAIN UPPER [None]
  - ADENOMYOSIS [None]
  - ANXIETY [None]
  - APHTHOUS STOMATITIS [None]
  - ARTHRALGIA [None]
  - ARTHRITIS [None]
  - ASTHENIA [None]
  - ASTHMA [None]
  - ATROPHY [None]
  - BLOOD CHOLESTEROL INCREASED [None]
  - BLOOD TRIGLYCERIDES INCREASED [None]
  - BRADYCARDIA [None]
  - BREAST PAIN [None]
  - BRONCHITIS [None]
  - BURNING SENSATION [None]
  - BURSITIS [None]
  - CARDIAC DISORDER [None]
  - CARDIAC MURMUR [None]
  - CARDIAC VALVE DISEASE [None]
  - CERVICAL CYST [None]
  - CERVICITIS [None]
  - CHANGE OF BOWEL HABIT [None]
  - CHEST DISCOMFORT [None]
  - CHEST PAIN [None]
  - CHRONIC FATIGUE SYNDROME [None]
  - CLOSTRIDIUM DIFFICILE COLITIS [None]
  - COLITIS ULCERATIVE [None]
  - COLON ADENOMA [None]
  - COLONIC POLYP [None]
  - CONSTIPATION [None]
  - CROHN'S DISEASE [None]
  - DEPRESSION [None]
  - DIARRHOEA [None]
  - DIARRHOEA HAEMORRHAGIC [None]
  - DIZZINESS [None]
  - DYSGEUSIA [None]
  - DYSMENORRHOEA [None]
  - DYSPEPSIA [None]
  - DYSPHAGIA [None]
  - DYSPHONIA [None]
  - DYSPNOEA [None]
  - ENDOMETRIOSIS [None]
  - ERYTHEMA [None]
  - ESSENTIAL HYPERTENSION [None]
  - EYE INFECTION [None]
  - FACIAL PAIN [None]
  - FALL [None]
  - FATIGUE [None]
  - FEELING ABNORMAL [None]
  - FIBROMYALGIA [None]
  - FLATULENCE [None]
  - GASTROENTERITIS [None]
  - GASTROOESOPHAGEAL REFLUX DISEASE [None]
  - HAEMATOCHEZIA [None]
  - HEART INJURY [None]
  - HEPATIC ENZYME INCREASED [None]
  - HERPES SIMPLEX [None]
  - HODGKIN'S DISEASE [None]
  - HYPERHIDROSIS [None]
  - HYPERTENSION [None]
  - HYPOAESTHESIA [None]
  - HYSTERECTOMY [None]
  - INFERTILITY [None]
  - INFLAMMATORY BOWEL DISEASE [None]
  - INSOMNIA [None]
  - INTESTINAL OBSTRUCTION [None]
  - LACERATION [None]
  - LARGE INTESTINAL HAEMORRHAGE [None]
  - LIBIDO DECREASED [None]
  - LIVER DISORDER [None]
  - LOW DENSITY LIPOPROTEIN INCREASED [None]
  - MENSTRUATION IRREGULAR [None]
  - MIGRAINE [None]
  - MITRAL VALVE INCOMPETENCE [None]
  - MITRAL VALVE PROLAPSE [None]
  - MUCOUS STOOLS [None]
  - MUSCLE TIGHTNESS [None]
  - MYOCARDIAL ISCHAEMIA [None]
  - NASAL SEPTUM DEVIATION [None]
  - NAUSEA [None]
  - NEOPLASM MALIGNANT [None]
  - NIGHT BLINDNESS [None]
  - NON-HODGKIN'S LYMPHOMA [None]
  - OEDEMA [None]
  - OSTEOARTHRITIS [None]
  - PAIN [None]
  - PALPITATIONS [None]
  - PANCREATITIS [None]
  - PANIC DISORDER [None]
  - PARAESTHESIA [None]
  - PARAKERATOSIS [None]
  - PHARYNGOLARYNGEAL PAIN [None]
  - PITTING OEDEMA [None]
  - POLLAKIURIA [None]
  - PROCTALGIA [None]
  - PRURITUS [None]
  - PSYCHOMOTOR HYPERACTIVITY [None]
  - PULMONARY VALVE INCOMPETENCE [None]
  - PULSE PRESSURE DECREASED [None]
  - RECTAL HAEMORRHAGE [None]
  - RENAL DISORDER [None]
  - SALIVARY GLAND MASS [None]
  - SALPINGO-OOPHORECTOMY [None]
  - SCAB [None]
  - SINUS DISORDER [None]
  - SINUSITIS [None]
  - SLEEP APNOEA SYNDROME [None]
  - STOMATITIS [None]
  - STRESS [None]
  - SWELLING FACE [None]
  - SYNCOPE [None]
  - SYNCOPE VASOVAGAL [None]
  - SYSTEMIC LUPUS ERYTHEMATOSUS [None]
  - TOTAL CHOLESTEROL/HDL RATIO INCREASED [None]
  - TRANSIENT ISCHAEMIC ATTACK [None]
  - TREMOR [None]
  - TRICUSPID VALVE INCOMPETENCE [None]
  - UTERINE CERVICAL SQUAMOUS METAPLASIA [None]
  - VENTRICULAR EXTRASYSTOLES [None]
  - VISION BLURRED [None]
  - VOMITING [None]
  - VULVOVAGINAL DRYNESS [None]
